FAERS Safety Report 16840147 (Version 1)
Quarter: 2019Q3

REPORT INFORMATION
  Report Type: Spontaneous
  Country: CA (occurrence: CA)
  Receive Date: 20190923
  Receipt Date: 20190923
  Transmission Date: 20191005
  Serious: Yes (Hospitalization, Other)
  Sender: FDA-Public Use
  Company Number: CA-PFIZER INC-2019405455

PATIENT
  Age: 48 Year
  Sex: Female

DRUGS (4)
  1. CIPROFLOXACIN. [Suspect]
     Active Substance: CIPROFLOXACIN
     Indication: CYSTITIS
     Dosage: UNK
  2. CIPROFLOXACIN. [Suspect]
     Active Substance: CIPROFLOXACIN
     Indication: CYSTITIS
     Dosage: 500 MG, 2X/DAY
     Route: 065
  3. CIPROFLOXACIN. [Suspect]
     Active Substance: CIPROFLOXACIN
     Indication: ANTIBIOTIC PROPHYLAXIS
  4. CIPROFLOXACIN. [Suspect]
     Active Substance: CIPROFLOXACIN
     Indication: ANTIBIOTIC PROPHYLAXIS

REACTIONS (8)
  - Gait disturbance [Unknown]
  - Gastrointestinal motility disorder [Unknown]
  - Joint swelling [Unknown]
  - Intestinal obstruction [Unknown]
  - Fatigue [Unknown]
  - Abdominal distension [Unknown]
  - Feeling cold [Unknown]
  - Infrequent bowel movements [Unknown]
